FAERS Safety Report 8196488-3 (Version None)
Quarter: 2012Q1

REPORT INFORMATION
  Report Type: 
  Country: None (occurrence: None)
  Receive Date: 20120309
  Receipt Date: 20120307
  Transmission Date: 20120608
  Serious: Yes (Other)
  Sender: FDA-Public Use
  Company Number: US-PFIZER INC-2012061684

PATIENT
  Sex: Female
  Weight: 63.492 kg

DRUGS (2)
  1. LOSARTAN [Concomitant]
     Indication: HYPERTENSION
     Dosage: UNK
  2. CHANTIX [Suspect]
     Indication: SMOKING CESSATION THERAPY
     Dosage: 0.5 MG, 1X/DAY
     Route: 048
     Dates: start: 20070315, end: 20070501

REACTIONS (4)
  - MENISCUS LESION [None]
  - HOT FLUSH [None]
  - TREATMENT NONCOMPLIANCE [None]
  - INCORRECT DRUG ADMINISTRATION DURATION [None]
